FAERS Safety Report 6284616-6 (Version None)
Quarter: 2009Q3

REPORT INFORMATION
  Report Type: 
  Country: None (occurrence: None)
  Receive Date: 20090727
  Receipt Date: 20090714
  Transmission Date: 20100115
  Serious: Yes (Death)
  Sender: FDA-Public Use
  Company Number: US-MYLANLABS-2009S1012532

PATIENT
  Age: 29 Year
  Sex: Female

DRUGS (3)
  1. EMSAM [Suspect]
  2. TRAZODONE [Suspect]
  3. LITHIUM CARBONATE [Suspect]

REACTIONS (2)
  - CARDIAC DISORDER [None]
  - DRUG INTERACTION [None]
